FAERS Safety Report 9248325 (Version 1)
Quarter: 2013Q1

REPORT INFORMATION
  Report Type: Spontaneous
  Country: US (occurrence: None)
  Receive Date: 20130305
  Receipt Date: 20130305
  Transmission Date: 20140127
  Serious: Yes (Hospitalization)
  Sender: FDA-Public Use
  Company Number: 163-21880-12053451

PATIENT
  Age: 78 Year
  Sex: Male

DRUGS (1)
  1. REVLIMID [Suspect]
     Indication: MYELODYSPLASTIC SYNDROME
     Dosage: 25MG, DAILY X 21 DAYS FOLLOWED BY 7 DAYS OFF, PO?
     Route: 048
     Dates: start: 201203, end: 2012

REACTIONS (3)
  - Pneumonia [None]
  - Blood test abnormal [None]
  - Drug ineffective [None]
